FAERS Safety Report 7398803-7 (Version None)
Quarter: 2011Q2

REPORT INFORMATION
  Report Type: 
  Country: None (occurrence: None)
  Receive Date: 20110404
  Receipt Date: 20110404
  Transmission Date: 20111010
  Serious: Yes (Hospitalization)
  Sender: FDA-Public Use
  Company Number: None

PATIENT
  Sex: Female

DRUGS (11)
  1. TIVOZANIB (AV-951) [Suspect]
     Indication: COLORECTAL CANCER
     Dosage: 1.0 MG PO DAILY
     Route: 048
     Dates: start: 20110318, end: 20110325
  2. ASPIRIN [Concomitant]
  3. NIZATIDINE [Concomitant]
  4. CLONAZEPAM [Concomitant]
  5. SENNA [Concomitant]
  6. HYDROCODONE [Concomitant]
  7. TRIAMTERENE AND HYDROCHLOROTHIAZIDE [Concomitant]
  8. MVT [Concomitant]
  9. LEVOTHYROXINE SODIUM [Concomitant]
  10. MIRALAX [Concomitant]
  11. EVEROLIMUS (RAD001) [Suspect]
     Indication: COLORECTAL CANCER
     Dosage: 10 MG PO DAILY
     Route: 048
     Dates: start: 20110318, end: 20110325

REACTIONS (8)
  - DECREASED APPETITE [None]
  - ASPARTATE AMINOTRANSFERASE INCREASED [None]
  - COLORECTAL CANCER METASTATIC [None]
  - BLOOD BILIRUBIN INCREASED [None]
  - ASTHENIA [None]
  - ALANINE AMINOTRANSFERASE INCREASED [None]
  - NEOPLASM MALIGNANT [None]
  - BLOOD ALKALINE PHOSPHATASE INCREASED [None]
